FAERS Safety Report 14261011 (Version 1)
Quarter: 2017Q4

REPORT INFORMATION
  Report Type: Spontaneous
  Country: AU (occurrence: AU)
  Receive Date: 20171207
  Receipt Date: 20171207
  Transmission Date: 20180321
  Serious: Yes (Other)
  Sender: FDA-Public Use
  Company Number: PHHY2017AU171755

PATIENT
  Age: 47 Year
  Sex: Female

DRUGS (2)
  1. OLANZAPINE SANDOZ [Suspect]
     Active Substance: OLANZAPINE
     Indication: SCHIZOPHRENIA
     Dosage: 5 MG, UNK
     Route: 065
  2. OLANZAPINE SANDOZ [Suspect]
     Active Substance: OLANZAPINE
     Dosage: 7.5 MG, UNK
     Route: 065

REACTIONS (17)
  - Flushing [Unknown]
  - Headache [Unknown]
  - Loss of consciousness [Unknown]
  - Dry mouth [Unknown]
  - Myocardial infarction [Unknown]
  - Vision blurred [Unknown]
  - Agitation [Unknown]
  - Dizziness [Unknown]
  - Mental impairment [Unknown]
  - Eye movement disorder [Unknown]
  - Depression [Unknown]
  - Fatigue [Unknown]
  - Swollen tongue [Unknown]
  - Hypometabolism [Unknown]
  - Nightmare [Unknown]
  - Thinking abnormal [Unknown]
  - Weight increased [Unknown]
